FAERS Safety Report 5476924-3 (Version None)
Quarter: 2007Q4

REPORT INFORMATION
  Report Type: 
  Country: None (occurrence: None)
  Receive Date: 20071002
  Receipt Date: 20070925
  Transmission Date: 20080405
  Serious: Yes (Death)
  Sender: FDA-Public Use
  Company Number: 163-20785-07090449

PATIENT
  Age: 70 Year
  Sex: Female

DRUGS (2)
  1. THALOMID [Suspect]
     Indication: MULTIPLE MYELOMA
     Dosage: 200 MG, 1 IN 1 D, AURICULAR (OTIC)
     Route: 001
     Dates: start: 20070409, end: 20070504
  2. VELCADE [Concomitant]

REACTIONS (4)
  - ANOXIC ENCEPHALOPATHY [None]
  - MALIGNANT NEOPLASM PROGRESSION [None]
  - MULTIPLE MYELOMA [None]
  - RASH [None]
